FAERS Safety Report 4894052-2 (Version None)
Quarter: 2006Q1

REPORT INFORMATION
  Report Type: 
  Country: None (occurrence: None)
  Receive Date: 20060127
  Receipt Date: 20050525
  Transmission Date: 20060701
  Serious: No
  Sender: FDA-Public Use
  Company Number: US-GLAXOSMITHKLINE-A0560418A

PATIENT
  Sex: Female

DRUGS (2)
  1. WELLBUTRIN [Suspect]
     Indication: DRUG USE FOR UNKNOWN INDICATION
     Route: 048
     Dates: start: 20050413
  2. CONCURRENT MEDICATIONS [Concomitant]

REACTIONS (3)
  - DYSGEUSIA [None]
  - PHOTOPHOBIA [None]
  - TREMOR [None]
